FAERS Safety Report 4488714-9 (Version None)
Quarter: 2004Q4

REPORT INFORMATION
  Report Type: 
  Country: None (occurrence: None)
  Receive Date: 20041025
  Receipt Date: 20041012
  Transmission Date: 20050328
  Serious: Yes (Death, Hospitalization)
  Sender: FDA-Public Use
  Company Number: 2004078004

PATIENT
  Age: 82 Year
  Sex: Female
  Weight: 51.6 kg

DRUGS (6)
  1. ATORVASTATIN (ATORVASTATIN) [Suspect]
     Indication: BLOOD CHOLESTEROL INCREASED
     Dosage: 10 MG (10 MG, 1 IN 1 D) ORAL
     Route: 048
     Dates: start: 20040401, end: 20040515
  2. TRIMETHOPRIM [Concomitant]
  3. FLUOXETINE [Concomitant]
  4. RABEPRAZOLE SODIUM [Concomitant]
  5. CLOPIDOGREL [Concomitant]
  6. ACETYLSALICYLIC ACID [Concomitant]

REACTIONS (2)
  - HEPATITIS FULMINANT [None]
  - MYOCARDIAL INFARCTION [None]
